FAERS Safety Report 21880119 (Version 2)
Quarter: 2023Q1

REPORT INFORMATION
  Report Type: Report from Study
  Country: FR (occurrence: FR)
  Receive Date: 20230118
  Receipt Date: 20230203
  Transmission Date: 20230418
  Serious: Yes (Death, Hospitalization)
  Sender: FDA-Public Use
  Company Number: FR-002147023-NVSC2023FR010119

PATIENT
  Age: 53 Year
  Sex: Male

DRUGS (6)
  1. SPARTALIZUMAB [Suspect]
     Active Substance: SPARTALIZUMAB
     Indication: Oesophageal cancer metastatic
     Dosage: 300 MG EVERY 1 DAY
     Route: 042
     Dates: start: 20221213, end: 20221213
  2. CAPMATINIB [Suspect]
     Active Substance: CAPMATINIB
     Indication: Oesophageal cancer metastatic
     Dosage: 800 MG EVERY 1 DAY
     Route: 048
     Dates: start: 20221213
  3. ESOMEPRAZOLE [Concomitant]
     Active Substance: ESOMEPRAZOLE
     Indication: Gastrointestinal haemorrhage
     Dosage: 40 MG EVERY 1 DAY
     Route: 048
     Dates: start: 20200101
  4. HYDROCHLOROTHIAZIDE [Concomitant]
     Active Substance: HYDROCHLOROTHIAZIDE
     Indication: Oesophageal carcinoma
     Dosage: 12.5 MG EVERY 1 DAY
     Route: 048
     Dates: start: 20211118
  5. ACETAMINOPHEN [Concomitant]
     Active Substance: ACETAMINOPHEN
     Indication: Oesophageal carcinoma
     Dosage: 1 G EVERY 1 DAY
     Route: 048
     Dates: start: 20220801
  6. IRBESARTAN [Concomitant]
     Active Substance: IRBESARTAN
     Indication: Oesophageal carcinoma
     Dosage: 300 MG EVERY 1 DAY
     Route: 048
     Dates: start: 20211118

REACTIONS (2)
  - Hepatitis fulminant [Fatal]
  - Gastrointestinal haemorrhage [Not Recovered/Not Resolved]

NARRATIVE: CASE EVENT DATE: 20230106
